FAERS Safety Report 23954841 (Version 2)
Quarter: 2025Q1

REPORT INFORMATION
  Report Type: Spontaneous
  Country: US (occurrence: US)
  Receive Date: 20240610
  Receipt Date: 20250109
  Transmission Date: 20250408
  Serious: Yes (Hospitalization)
  Sender: BAUSCH AND LOMB
  Company Number: US-BAUSCH-BL-2024-008751

PATIENT
  Age: 73 Year
  Sex: Male

DRUGS (1)
  1. XIFAXAN [Suspect]
     Active Substance: RIFAXIMIN
     Indication: Hepatic encephalopathy
     Route: 048

REACTIONS (4)
  - Ammonia increased [Unknown]
  - Blood pressure increased [Unknown]
  - COVID-19 [Recovering/Resolving]
  - Infrequent bowel movements [Unknown]

NARRATIVE: CASE EVENT DATE: 20240101
